FAERS Safety Report 10099513 (Version 2)
Quarter: 2014Q2

REPORT INFORMATION
  Report Type: Spontaneous
  Country: US (occurrence: US)
  Receive Date: 20140423
  Receipt Date: 20140502
  Transmission Date: 20141212
  Serious: Yes (Other)
  Sender: FDA-Public Use
  Company Number: US-ABBVIE-14P-163-1226794-00

PATIENT
  Age: 71 Year
  Sex: Female
  Weight: 83.54 kg

DRUGS (2)
  1. HUMIRA [Suspect]
     Indication: PSORIATIC ARTHROPATHY
     Route: 058
  2. HUMIRA [Suspect]

REACTIONS (7)
  - Oral neoplasm [Recovering/Resolving]
  - Wound secretion [Not Recovered/Not Resolved]
  - Diarrhoea [Recovered/Resolved]
  - Wound [Not Recovered/Not Resolved]
  - Fall [Unknown]
  - Anaemia [Not Recovered/Not Resolved]
  - Skin abrasion [Not Recovered/Not Resolved]
